FAERS Safety Report 12862843 (Version 1)
Quarter: 2016Q4

REPORT INFORMATION
  Report Type: Spontaneous
  Country: US (occurrence: US)
  Receive Date: 20161019
  Receipt Date: 20161019
  Transmission Date: 20170207
  Serious: No
  Sender: FDA-Public Use
  Company Number: US-BAYER-2016-197125

PATIENT
  Age: 56 Year
  Sex: Female
  Weight: 72.56 kg

DRUGS (1)
  1. ALEVE [Suspect]
     Active Substance: NAPROXEN SODIUM
     Indication: BACK PAIN
     Dosage: 2 DF, QD (SOMETIMES TAKES 1 DF ONCE A DAY)
     Route: 048
     Dates: start: 201610

REACTIONS (3)
  - Drug effect incomplete [Unknown]
  - Wrong technique in product usage process [Unknown]
  - Discomfort [Unknown]

NARRATIVE: CASE EVENT DATE: 20161011
